FAERS Safety Report 9248267 (Version 4)
Quarter: 2014Q2

REPORT INFORMATION
  Report Type: Spontaneous
  Country: US (occurrence: US)
  Receive Date: 20130423
  Receipt Date: 20140414
  Transmission Date: 20141212
  Serious: Yes (Hospitalization, Other)
  Sender: FDA-Public Use
  Company Number: US-BAYER-2013-050039

PATIENT
  Age: 27 Year
  Sex: Female
  Weight: 61.22 kg

DRUGS (1)
  1. MIRENA [Suspect]
     Indication: CONTRACEPTION
     Dosage: 20 MCG/24HR, CONT
     Route: 015
     Dates: start: 20070703, end: 20110928

REACTIONS (21)
  - Uterine perforation [None]
  - Habitual abortion [None]
  - Coeliac disease [None]
  - Renal haemorrhage [None]
  - Injury [None]
  - Back pain [None]
  - Emotional distress [None]
  - Pregnancy with contraceptive device [None]
  - Drug ineffective [None]
  - Genital haemorrhage [None]
  - Pyrexia [None]
  - Abdominal pain [None]
  - Irritable bowel syndrome [None]
  - Constipation [None]
  - Inflammation [None]
  - Depression [None]
  - Anxiety [None]
  - Grief reaction [None]
  - Device dislocation [None]
  - Off label use [None]
  - Ectopic pregnancy [None]
